FAERS Safety Report 18368093 (Version 1)
Quarter: 2020Q4

REPORT INFORMATION
  Report Type: Spontaneous
  Country: US (occurrence: US)
  Receive Date: 20201009
  Receipt Date: 20201009
  Transmission Date: 20210114
  Serious: Yes (Other)
  Sender: FDA-Public Use
  Company Number: US-SA-2020SA273828

PATIENT

DRUGS (7)
  1. GLYPARAMIDE [Concomitant]
     Active Substance: GLYPARAMIDE
     Dosage: UNKNOWN
  2. HUMALOG [Concomitant]
     Active Substance: INSULIN LISPRO
     Dosage: UNKNOWN
  3. REPATHA [Concomitant]
     Active Substance: EVOLOCUMAB
     Dosage: UNKNOWN
     Route: 065
  4. LANTUS [Suspect]
     Active Substance: INSULIN GLARGINE
     Indication: TYPE 2 DIABETES MELLITUS
     Dosage: 65 IU, QD (NIGHT)
     Route: 065
     Dates: start: 2016
  5. SAXENDA [Concomitant]
     Active Substance: LIRAGLUTIDE
     Dosage: UNKNOWN
  6. KLOR-CON [Concomitant]
     Active Substance: POTASSIUM CHLORIDE
     Dosage: UNKNOWN
  7. SINGULAIR [Concomitant]
     Active Substance: MONTELUKAST SODIUM
     Dosage: UNKNOWN
     Route: 065

REACTIONS (5)
  - Cataract [Unknown]
  - Blood glucose decreased [Recovered/Resolved]
  - Fibromyalgia [Unknown]
  - Migraine [Unknown]
  - Product use complaint [Unknown]

NARRATIVE: CASE EVENT DATE: 2020
